FAERS Safety Report 13916059 (Version 1)
Quarter: 2017Q3

REPORT INFORMATION
  Report Type: Spontaneous
  Country: US (occurrence: US)
  Receive Date: 20170829
  Receipt Date: 20170829
  Transmission Date: 20171127
  Serious: No
  Sender: FDA-Public Use
  Company Number: US-MYLANLABS-2016M1037422

PATIENT
  Age: 1 Year
  Sex: Female

DRUGS (3)
  1. MIACALCIN [Suspect]
     Active Substance: CALCITONIN SALMON
     Indication: HYPERCALCAEMIA
     Dosage: 50 IU, ONCE
     Route: 042
     Dates: start: 20160828, end: 20160828
  2. MIACALCIN [Suspect]
     Active Substance: CALCITONIN SALMON
     Dosage: 10 IU, BID
     Route: 042
     Dates: start: 20160831, end: 20160831
  3. MIACALCIN [Suspect]
     Active Substance: CALCITONIN SALMON
     Dosage: 10 IU, ONCE
     Route: 042
     Dates: start: 20160830, end: 20160830

REACTIONS (1)
  - Tachycardia [Not Recovered/Not Resolved]

NARRATIVE: CASE EVENT DATE: 20160830
